FAERS Safety Report 15340656 (Version 4)
Quarter: 2022Q1

REPORT INFORMATION
  Report Type: Report from Study
  Country: US (occurrence: US)
  Receive Date: 20180831
  Receipt Date: 20220215
  Transmission Date: 20220423
  Serious: Yes (Other)
  Sender: FDA-Public Use
  Company Number: US-BIOGEN-2017BI00353906

PATIENT
  Sex: Female

DRUGS (6)
  1. AVONEX PEN [Suspect]
     Active Substance: INTERFERON BETA-1A
     Indication: Multiple sclerosis
     Route: 050
     Dates: start: 20100108, end: 20140227
  2. AVONEX PEN [Suspect]
     Active Substance: INTERFERON BETA-1A
     Route: 050
     Dates: start: 2012, end: 20140227
  3. AVONEX PEN [Suspect]
     Active Substance: INTERFERON BETA-1A
     Route: 050
     Dates: start: 20140523
  4. AVONEX PEN [Suspect]
     Active Substance: INTERFERON BETA-1A
     Route: 050
     Dates: start: 201801
  5. AVONEX PEN [Suspect]
     Active Substance: INTERFERON BETA-1A
     Route: 030
  6. AVONEX [Suspect]
     Active Substance: INTERFERON BETA-1A
     Indication: Multiple sclerosis
     Route: 030

REACTIONS (11)
  - Quadriplegia [Recovered/Resolved]
  - Paralysis [Recovered/Resolved]
  - Blindness [Recovered/Resolved]
  - Cataract [Recovered/Resolved]
  - Hypophagia [Recovered/Resolved]
  - Vision blurred [Not Recovered/Not Resolved]
  - Multiple sclerosis relapse [Not Recovered/Not Resolved]
  - Memory impairment [Not Recovered/Not Resolved]
  - Peripheral swelling [Recovered/Resolved]
  - Anxiety [Not Recovered/Not Resolved]
  - Weight decreased [Recovered/Resolved]

NARRATIVE: CASE EVENT DATE: 20160101
